FAERS Safety Report 25287077 (Version 2)
Quarter: 2025Q2

REPORT INFORMATION
  Report Type: Spontaneous
  Country: IT (occurrence: IT)
  Receive Date: 20250509
  Receipt Date: 20250516
  Transmission Date: 20250717
  Serious: Yes (Life-Threatening, Hospitalization)
  Sender: BIOGEN
  Company Number: None

PATIENT
  Age: 37 Year
  Sex: Female

DRUGS (4)
  1. TECFIDERA [Suspect]
     Active Substance: DIMETHYL FUMARATE
     Indication: Relapsing-remitting multiple sclerosis
     Dosage: DIMETHYL FUMARATE 240 MG TWICE IN A DAY
     Route: 050
     Dates: start: 20180718
  2. TECFIDERA [Suspect]
     Active Substance: DIMETHYL FUMARATE
     Dosage: DIMETHYL FUMARATE 240 MG TWICE IN A DAY
     Route: 050
     Dates: start: 20180731, end: 20211103
  3. TECFIDERA [Suspect]
     Active Substance: DIMETHYL FUMARATE
     Dosage: DIMETHYL FUMARATE 240 MG TWICE IN A DAY
     Route: 050
     Dates: start: 20220718, end: 20240607
  4. TECFIDERA [Suspect]
     Active Substance: DIMETHYL FUMARATE
     Dosage: DIMETHYL FUMARATE 240 MG TWICE IN A DAY
     Route: 050
     Dates: start: 20250115

REACTIONS (1)
  - Breast cancer [Unknown]

NARRATIVE: CASE EVENT DATE: 20250407
